FAERS Safety Report 7152409-3 (Version None)
Quarter: 2010Q4

REPORT INFORMATION
  Report Type: 
  Country: None (occurrence: None)
  Receive Date: 20101124
  Receipt Date: 20101112
  Transmission Date: 20110411
  Serious: Yes (Life-Threatening)
  Sender: FDA-Public Use
  Company Number: 011889

PATIENT
  Age: 85 Year
  Sex: Male

DRUGS (7)
  1. PLETAL [Suspect]
     Indication: PRODUCT USED FOR UNKNOWN INDICATION
     Dosage: 100 MG, DAILY DOSE, ORAL
     Route: 048
     Dates: start: 20101013, end: 20101025
  2. TAMSULOSIN HCL [Concomitant]
  3. PROSTAL L (CHLORMADINONE ACETATE) [Concomitant]
  4. UBRETID (DISTIGMINE BROMIDE) [Concomitant]
  5. DIOVAN [Concomitant]
  6. ARICEPT [Concomitant]
  7. LAMISIL (TERBINAFIINE HYDROCHLORIDE) [Concomitant]

REACTIONS (2)
  - DRUG DISPENSING ERROR [None]
  - GAIT DISTURBANCE [None]
